FAERS Safety Report 19903467 (Version 2)
Quarter: 2022Q1

REPORT INFORMATION
  Report Type: Spontaneous
  Country: DE (occurrence: DE)
  Receive Date: 20211001
  Receipt Date: 20220102
  Transmission Date: 20220424
  Serious: Yes (Other)
  Sender: FDA-Public Use
  Company Number: DE-002147023-NVSC2021DE217825

PATIENT
  Sex: Female

DRUGS (3)
  1. XOLAIR [Suspect]
     Active Substance: OMALIZUMAB
     Indication: Pneumonitis
     Dosage: 450 MG PER 3 DF SYRINGES, EVERY 4 WEEKS
     Route: 058
     Dates: start: 202106, end: 2021
  2. XOLAIR [Suspect]
     Active Substance: OMALIZUMAB
     Indication: Asthma
     Dosage: UNK
     Route: 065
     Dates: start: 202107
  3. XOLAIR [Suspect]
     Active Substance: OMALIZUMAB
     Dosage: UNK
     Route: 065
     Dates: start: 20210822

REACTIONS (9)
  - Lupus-like syndrome [Unknown]
  - Scleroderma [Unknown]
  - Mixed connective tissue disease [Unknown]
  - Syncope [Recovered/Resolved]
  - Fall [Unknown]
  - Movement disorder [Unknown]
  - Musculoskeletal stiffness [Unknown]
  - Pain [Unknown]
  - Arthralgia [Unknown]

NARRATIVE: CASE EVENT DATE: 20210601
